FAERS Safety Report 19748886 (Version 1)
Quarter: 2021Q3

REPORT INFORMATION
  Report Type: Spontaneous
  Country: US (occurrence: US)
  Receive Date: 20210826
  Receipt Date: 20210826
  Transmission Date: 20211014
  Serious: Yes (Other)
  Sender: FDA-Public Use
  Company Number: US-GLAXOSMITHKLINE-US2021GSK179997

PATIENT
  Sex: Male

DRUGS (8)
  1. ZANTAC [Suspect]
     Active Substance: RANITIDINE HYDROCHLORIDE
     Dosage: UNK
  2. RANITIDINE. [Suspect]
     Active Substance: RANITIDINE
     Indication: GASTRIC ULCER
     Dosage: 150 MG PRESCRIPTION
     Dates: start: 200401, end: 201912
  3. RANITIDINE. [Suspect]
     Active Substance: RANITIDINE
     Dosage: 300 MG, QD
     Dates: start: 200401, end: 201912
  4. RANITIDINE. [Suspect]
     Active Substance: RANITIDINE
     Dosage: 300 MG, QD
     Dates: start: 200401, end: 201912
  5. ZANTAC [Suspect]
     Active Substance: RANITIDINE HYDROCHLORIDE
     Indication: GASTRIC ULCER
     Dosage: 300 MG, QD
     Dates: start: 198301, end: 201912
  6. ZANTAC [Suspect]
     Active Substance: RANITIDINE HYDROCHLORIDE
     Indication: GASTRIC ULCER
     Dosage: 150 MG PRESCRIPTION
     Dates: start: 198301, end: 201912
  7. ZANTAC [Suspect]
     Active Substance: RANITIDINE HYDROCHLORIDE
     Dosage: 300 MG, QD
     Dates: start: 198301, end: 201912
  8. RANITIDINE. [Suspect]
     Active Substance: RANITIDINE
     Indication: GASTRIC ULCER
     Dosage: 150 MG PRESCRIPTION
     Dates: start: 200401, end: 201912

REACTIONS (2)
  - Skin cancer [Unknown]
  - Renal cancer [Unknown]
